FAERS Safety Report 5786493-6 (Version None)
Quarter: 2008Q2

REPORT INFORMATION
  Report Type: 
  Country: None (occurrence: None)
  Receive Date: 20080624
  Receipt Date: 20080623
  Transmission Date: 20081010
  Serious: Yes (Hospitalization)
  Sender: FDA-Public Use
  Company Number: IT-BRISTOL-MYERS SQUIBB COMPANY-14199459

PATIENT
  Sex: Male

DRUGS (5)
  1. CISPLATIN [Suspect]
     Indication: GASTRIC CANCER
     Route: 042
  2. IRINOTECAN HCL [Suspect]
     Indication: GASTRIC CANCER
     Route: 042
  3. FLUOROURACIL [Suspect]
     Indication: GASTRIC CANCER
     Route: 042
  4. LEUCOVORIN CALCIUM [Suspect]
     Indication: GASTRIC CANCER
     Route: 042
  5. DOCETAXEL [Suspect]
     Indication: GASTRIC CANCER
     Route: 042

REACTIONS (1)
  - INTESTINAL OBSTRUCTION [None]
